FAERS Safety Report 7045054-1 (Version None)
Quarter: 2010Q4

REPORT INFORMATION
  Report Type: 
  Country: None (occurrence: None)
  Receive Date: 20101008
  Receipt Date: 20101008
  Transmission Date: 20110411
  Serious: Yes (Other)
  Sender: FDA-Public Use
  Company Number: None

PATIENT
  Age: 22 Year
  Sex: Male
  Weight: 63.5036 kg

DRUGS (2)
  1. CLONAZEPAM [Suspect]
     Indication: ANXIETY
     Dosage: 1/2 - 1 TABLET BID PO
     Route: 048
     Dates: start: 20100903, end: 20100903
  2. CLONAZEPAM [Suspect]
     Indication: ANXIETY
     Dosage: 1/2 - 1 TABLET BID PO
     Route: 048
     Dates: start: 20101003, end: 20101003

REACTIONS (7)
  - AGGRESSION [None]
  - AGITATION [None]
  - ANGER [None]
  - FEELING JITTERY [None]
  - PSYCHOMOTOR HYPERACTIVITY [None]
  - THINKING ABNORMAL [None]
  - YAWNING [None]
